FAERS Safety Report 13083700 (Version 1)
Quarter: 2017Q1

REPORT INFORMATION
  Report Type: Spontaneous
  Country: GB (occurrence: GB)
  Receive Date: 20170104
  Receipt Date: 20170104
  Transmission Date: 20170428
  Serious: Yes (Other)
  Sender: FDA-Public Use
  Company Number: GB-AUROBINDO-AUR-APL-2016-15916

PATIENT
  Age: 55 Year
  Sex: Male
  Weight: 73 kg

DRUGS (5)
  1. LOSARTAN. [Concomitant]
     Active Substance: LOSARTAN
     Indication: PRODUCT USED FOR UNKNOWN INDICATION
     Route: 065
  2. FLUCONAZOLE 150MG [Suspect]
     Active Substance: FLUCONAZOLE
     Indication: TINEA INFECTION
     Dosage: 150 MG, UNK
     Route: 048
     Dates: start: 201611
  3. BIMATOPROST. [Concomitant]
     Active Substance: BIMATOPROST
     Indication: PRODUCT USED FOR UNKNOWN INDICATION
     Route: 065
  4. NEVIRAPINE. [Concomitant]
     Active Substance: NEVIRAPINE
     Indication: PRODUCT USED FOR UNKNOWN INDICATION
     Route: 065
  5. ABACAVIR + LAMIVUDIN [Concomitant]
     Active Substance: ABACAVIR\LAMIVUDINE
     Indication: PRODUCT USED FOR UNKNOWN INDICATION
     Route: 065

REACTIONS (9)
  - Skin hypopigmentation [Not Recovered/Not Resolved]
  - Rash maculo-papular [Not Recovered/Not Resolved]
  - Erythema [Not Recovered/Not Resolved]
  - Eye swelling [Not Recovered/Not Resolved]
  - Dry skin [Unknown]
  - Eye pruritus [Not Recovered/Not Resolved]
  - Pruritus generalised [Not Recovered/Not Resolved]
  - Eye pain [Unknown]
  - Tinnitus [Not Recovered/Not Resolved]

NARRATIVE: CASE EVENT DATE: 20161121
